FAERS Safety Report 9887588 (Version 1)
Quarter: 2013Q4

REPORT INFORMATION
  Report Type: Spontaneous
  Country: US (occurrence: None)
  Receive Date: 20131223
  Receipt Date: 20131223
  Transmission Date: 20140711
  Serious: No
  Sender: FDA-Public Use
  Company Number: 220452

PATIENT
  Sex: Male

DRUGS (1)
  1. PICATO (0.05%, GEL) [Suspect]
     Indication: ACTINIC KERATOSIS
     Dosage: DAILY TOPICAL
     Dates: start: 20121228, end: 20121229

REACTIONS (2)
  - Drug ineffective [None]
  - Drug administration error [None]
